FAERS Safety Report 25130116 (Version 1)
Quarter: 2025Q1

REPORT INFORMATION
  Report Type: Spontaneous
  Country: CN (occurrence: CN)
  Receive Date: 20250327
  Receipt Date: 20250327
  Transmission Date: 20250408
  Serious: Yes (Hospitalization)
  Sender: PFIZER
  Company Number: CN-PFIZER INC-PV202500037007

PATIENT
  Age: 14 Year
  Sex: Male
  Weight: 32.5 kg

DRUGS (2)
  1. CYTARABINE [Suspect]
     Active Substance: CYTARABINE
     Indication: Acute lymphocytic leukaemia
     Dosage: 2.4 G, 1X/DAY
     Route: 041
     Dates: start: 20250320, end: 20250322
  2. VINDESINE SULFATE [Suspect]
     Active Substance: VINDESINE SULFATE
     Indication: Acute lymphocytic leukaemia
     Dosage: 3.6 MG, 1X/DAY
     Route: 041
     Dates: start: 20250320, end: 20250320

REACTIONS (3)
  - Myelosuppression [Unknown]
  - Hepatic function abnormal [Unknown]
  - Drug-induced liver injury [Unknown]

NARRATIVE: CASE EVENT DATE: 20250324
